FAERS Safety Report 5802060-X (Version None)
Quarter: 2008Q3

REPORT INFORMATION
  Report Type: 
  Country: None (occurrence: None)
  Receive Date: 20080707
  Receipt Date: 20080630
  Transmission Date: 20090109
  Serious: Yes (Hospitalization)
  Sender: FDA-Public Use
  Company Number: AU-ASTRAZENECA-2008AP05043

PATIENT
  Sex: Female

DRUGS (3)
  1. NEXIUM [Suspect]
  2. AMOXICILLIN [Suspect]
  3. CLARITHROMYCIN [Suspect]

REACTIONS (1)
  - ANGINA PECTORIS [None]
